FAERS Safety Report 10576627 (Version 2)
Quarter: 2014Q4

REPORT INFORMATION
  Report Type: Spontaneous
  Country: CN (occurrence: CN)
  Receive Date: 20141111
  Receipt Date: 20141127
  Transmission Date: 20150529
  Serious: Yes (Other)
  Sender: FDA-Public Use
  Company Number: CN-MERCK-1411CHN002289

PATIENT

DRUGS (1)
  1. SIMVASTATIN. [Suspect]
     Active Substance: SIMVASTATIN
     Indication: LIPIDS ABNORMAL
     Route: 048

REACTIONS (4)
  - Drug-induced liver injury [Unknown]
  - Rhabdomyolysis [Unknown]
  - Hepatic function abnormal [Unknown]
  - Rash [Unknown]
